FAERS Safety Report 5162639-8 (Version None)
Quarter: 2006Q4

REPORT INFORMATION
  Report Type: 
  Country: None (occurrence: None)
  Receive Date: 20061201
  Receipt Date: 20060705
  Transmission Date: 20070319
  Serious: Yes (Disabling)
  Sender: FDA-Public Use
  Company Number: GB-AVENTIS-200617457GDDC

PATIENT
  Age: 44 Year
  Sex: Female
  Weight: 83 kg

DRUGS (6)
  1. TAXOTERE [Suspect]
     Indication: BREAST CANCER
     Route: 041
     Dates: start: 20060119, end: 20060323
  2. HERCEPTIN [Suspect]
     Dosage: DOSE: UNK
  3. VOLTAREN [Concomitant]
     Dates: start: 19940101
  4. CODYDRAMOL [Concomitant]
  5. TRAMADOL HCL [Concomitant]
     Dosage: DOSE: 100 MG TID PRN
  6. AMITRIPTYLINE HCL [Concomitant]

REACTIONS (6)
  - ARTHRALGIA [None]
  - CARPAL TUNNEL SYNDROME [None]
  - HYPOAESTHESIA [None]
  - MYALGIA [None]
  - NEUROPATHY PERIPHERAL [None]
  - SKIN EXFOLIATION [None]
